FAERS Safety Report 9311763 (Version 1)
Quarter: 2013Q2

REPORT INFORMATION
  Report Type: Spontaneous
  Country: US (occurrence: US)
  Receive Date: 20130524
  Receipt Date: 20130524
  Transmission Date: 20140414
  Serious: Yes (Other)
  Sender: FDA-Public Use
  Company Number: US-RB-054171-13

PATIENT
  Age: 25 Year
  Sex: Female

DRUGS (4)
  1. SUBOXONE TABLET [Suspect]
     Indication: DRUG DEPENDENCE
     Dosage: PRESCRIBED 24 MG DAILY, BUT SOMETIMES TOOK AN EXTRA 8 MG TABLET
     Route: 060
     Dates: start: 2009, end: 2011
  2. SUBOXONE TABLET [Suspect]
     Dosage: PRESCRIBED 24 MG DAILY, BUT SOMETIMES TAKES AN EXTRA 8 MG TABLET
     Route: 060
     Dates: start: 2011
  3. SUBOXONE FILM [Suspect]
     Indication: DRUG DEPENDENCE
     Dosage: SUBOXONE FILM; USED FILM FOR LESS THAN A MONTH; DAILY DOSE UNKNOWN
     Route: 060
     Dates: start: 2011, end: 2011
  4. NICOTINE [Concomitant]
     Indication: NICOTINE DEPENDENCE
     Dosage: UP TO 1 AND A HALF PACKS PER DAY
     Route: 055

REACTIONS (5)
  - Incorrect dose administered [Not Recovered/Not Resolved]
  - Exposure during pregnancy [Recovered/Resolved]
  - Premature delivery [Recovered/Resolved]
  - Abdominal discomfort [Recovered/Resolved]
  - Migraine [Recovered/Resolved]
